FAERS Safety Report 16672991 (Version 5)
Quarter: 2019Q4

REPORT INFORMATION
  Report Type: Spontaneous
  Country: US (occurrence: US)
  Receive Date: 20190806
  Receipt Date: 20191104
  Transmission Date: 20200122
  Serious: No
  Sender: FDA-Public Use
  Company Number: US-PFIZER INC-2019294623

PATIENT
  Age: 75 Year
  Sex: Female
  Weight: 56.7 kg

DRUGS (13)
  1. OPDIVO [Suspect]
     Active Substance: NIVOLUMAB
     Indication: MALIGNANT MELANOMA
     Dosage: UNK, Q2WK
     Dates: start: 20180809
  2. SYNTHROID [Concomitant]
     Active Substance: LEVOTHYROXINE SODIUM
     Dosage: UNK
     Route: 065
     Dates: start: 20190705
  3. ELIQUIS [Suspect]
     Active Substance: APIXABAN
     Indication: HYPERTENSION
     Dosage: 5 MG, 2X/DAY
     Route: 048
     Dates: start: 201811
  4. PRAVACHOL [Suspect]
     Active Substance: PRAVASTATIN SODIUM
     Indication: BLOOD CHOLESTEROL INCREASED
     Dosage: 40 MILLIGRAM, QD
     Route: 048
     Dates: start: 2014
  5. SYNTHROID [Concomitant]
     Active Substance: LEVOTHYROXINE SODIUM
     Indication: THYROID THERAPY
     Dosage: 75 UG, 1X/DAY
     Route: 048
     Dates: start: 20190425
  6. EDARBYCLOR [Concomitant]
     Active Substance: AZILSARTAN KAMEDOXOMIL\CHLORTHALIDONE
     Indication: HYPERTENSION
     Dosage: 40 MG, 1X/DAY
     Route: 048
     Dates: start: 20190423
  7. ZETIA [Concomitant]
     Active Substance: EZETIMIBE
     Indication: BLOOD CHOLESTEROL INCREASED
     Dosage: 10 MG, 1X/DAY
     Route: 048
     Dates: start: 2018
  8. ELIQUIS [Suspect]
     Active Substance: APIXABAN
     Indication: PULMONARY THROMBOSIS
     Dosage: 5 MG, 2X/DAY
     Dates: start: 20181118
  9. TENORMIN [Concomitant]
     Active Substance: ATENOLOL
     Indication: HYPERTENSION
     Dosage: 50 MG, 1X/DAY
     Route: 048
     Dates: start: 20190508
  10. PROLIA [Concomitant]
     Active Substance: DENOSUMAB
     Dosage: UNK
     Route: 065
     Dates: start: 2012
  11. INLYTA [Suspect]
     Active Substance: AXITINIB
     Indication: BLOOD CHOLESTEROL INCREASED
     Dosage: 5 MG, 2X/DAY
     Route: 048
     Dates: start: 20190321
  12. INLYTA [Suspect]
     Active Substance: AXITINIB
     Indication: MALIGNANT MELANOMA
  13. YERVOY [Suspect]
     Active Substance: IPILIMUMAB
     Indication: MALIGNANT MELANOMA
     Dosage: UNK, Q2WK
     Dates: start: 201808, end: 20180809

REACTIONS (17)
  - Blood cholesterol increased [Recovered/Resolved]
  - Hypertension [Not Recovered/Not Resolved]
  - Disease recurrence [Recovered/Resolved]
  - Blister [Recovered/Resolved]
  - Ingrowing nail [Recovered/Resolved]
  - Diarrhoea [Recovered/Resolved]
  - Weight decreased [Not Recovered/Not Resolved]
  - Decreased appetite [Not Recovered/Not Resolved]
  - Eye irritation [Recovered/Resolved]
  - Thyroid disorder [Recovered/Resolved]
  - Hypoacusis [Recovered/Resolved]
  - Erythema [Recovered/Resolved]
  - Wound [Recovered/Resolved]
  - Hordeolum [Recovered/Resolved]
  - Asthenia [Not Recovered/Not Resolved]
  - Fatigue [Not Recovered/Not Resolved]
  - Pain [Recovered/Resolved]

NARRATIVE: CASE EVENT DATE: 201808
